FAERS Safety Report 24745758 (Version 8)
Quarter: 2025Q2

REPORT INFORMATION
  Report Type: Spontaneous
  Country: US (occurrence: US)
  Receive Date: 20241218
  Receipt Date: 20250603
  Transmission Date: 20250717
  Serious: Yes (Hospitalization)
  Sender: SANOFI AVENTIS
  Company Number: US-SA-2024SA369546

PATIENT
  Age: 47 Year
  Sex: Female
  Weight: 90.703 kg

DRUGS (41)
  1. DUPIXENT [Suspect]
     Active Substance: DUPILUMAB
     Indication: Asthma
     Route: 058
     Dates: start: 2024, end: 2024
  2. DUPIXENT [Suspect]
     Active Substance: DUPILUMAB
     Indication: Illness
     Dosage: 300 MG, QOW
     Route: 058
     Dates: start: 2024
  3. DUPIXENT [Suspect]
     Active Substance: DUPILUMAB
     Indication: Polymyositis
  4. DUPIXENT [Suspect]
     Active Substance: DUPILUMAB
     Indication: Immunodeficiency common variable
  5. DUPIXENT [Suspect]
     Active Substance: DUPILUMAB
     Indication: Product used for unknown indication
  6. GAMUNEX-C [Suspect]
     Active Substance: HUMAN IMMUNOGLOBULIN G
  7. XHANCE [Concomitant]
     Active Substance: FLUTICASONE PROPIONATE
  8. MELOXICAM [Concomitant]
     Active Substance: MELOXICAM
  9. CYCLOBENZAPRINE [Concomitant]
     Active Substance: CYCLOBENZAPRINE
  10. CLARITHROMYCIN [Concomitant]
     Active Substance: CLARITHROMYCIN
  11. PREDNISONE [Concomitant]
     Active Substance: PREDNISONE
  12. DIPHENHYDRAMINE HYDROCHLORIDE [Concomitant]
     Active Substance: DIPHENHYDRAMINE HYDROCHLORIDE
  13. PLAQUENIL [Concomitant]
     Active Substance: HYDROXYCHLOROQUINE SULFATE
  14. MUPIROCIN [Concomitant]
     Active Substance: MUPIROCIN
  15. SODIUM CHLORIDE [Concomitant]
     Active Substance: SODIUM CHLORIDE
  16. COPPER [Concomitant]
     Active Substance: COPPER
  17. RIBOFLAVIN [Concomitant]
     Active Substance: RIBOFLAVIN
  18. EPINEPHRINE [Concomitant]
     Active Substance: EPINEPHRINE
  19. LIDOCAINE [Concomitant]
     Active Substance: LIDOCAINE
  20. ADVAIR HFA [Concomitant]
     Active Substance: FLUTICASONE PROPIONATE\SALMETEROL XINAFOATE
  21. FLUTICASONE PROPIONATE AND SALMETEROL [Concomitant]
     Active Substance: FLUTICASONE PROPIONATE\SALMETEROL XINAFOATE
  22. MENATETRENONE [Concomitant]
     Active Substance: MENATETRENONE
  23. SELENIUM [Concomitant]
     Active Substance: SELENIUM
  24. NATTOVENA [Concomitant]
  25. IBUPROFEN [Concomitant]
     Active Substance: IBUPROFEN
  26. CYCLOBENZAPRINE HYDROCHLORIDE [Concomitant]
     Active Substance: CYCLOBENZAPRINE HYDROCHLORIDE
  27. DOXYCYCLINE HYCLATE [Concomitant]
     Active Substance: DOXYCYCLINE HYCLATE
  28. ACETAMINOPHEN [Concomitant]
     Active Substance: ACETAMINOPHEN
  29. VITAMIN E [Concomitant]
     Active Substance: .ALPHA.-TOCOPHEROL
  30. HEPARIN [Concomitant]
     Active Substance: HEPARIN SODIUM
  31. VITAMIN A [Concomitant]
     Active Substance: VITAMIN A
  32. SODIUM CHLORIDE [Concomitant]
     Active Substance: SODIUM CHLORIDE
  33. VALACYCLOVIR HYDROCHLORIDE [Concomitant]
     Active Substance: VALACYCLOVIR HYDROCHLORIDE
  34. PROMETHAZINE [Concomitant]
     Active Substance: PROMETHAZINE HYDROCHLORIDE
  35. BUDESONIDE [Concomitant]
     Active Substance: BUDESONIDE
  36. BENZONATATE [Concomitant]
     Active Substance: BENZONATATE
  37. ALBUTEROL SULFATE [Concomitant]
     Active Substance: ALBUTEROL SULFATE
  38. GAMUNEX [Concomitant]
     Active Substance: HUMAN IMMUNOGLOBULIN G
  39. NATTOKINASE [Concomitant]
     Active Substance: NATTOKINASE
  40. OXYCODONE AND ACETAMINOPHEN [Concomitant]
     Active Substance: ACETAMINOPHEN\OXYCODONE HYDROCHLORIDE
  41. VITAMINS NOS [Concomitant]
     Active Substance: VITAMINS

REACTIONS (14)
  - Post procedural haemorrhage [Unknown]
  - SARS-CoV-2 test positive [Unknown]
  - Nasal congestion [Unknown]
  - Musculoskeletal discomfort [Unknown]
  - Procedural headache [Unknown]
  - Procedural nausea [Unknown]
  - Nasal discomfort [Unknown]
  - Sputum discoloured [Unknown]
  - Headache [Unknown]
  - Productive cough [Unknown]
  - Sinusitis [Unknown]
  - Endodontic procedure [Unknown]
  - Sinus operation [Unknown]
  - Product use in unapproved indication [Unknown]

NARRATIVE: CASE EVENT DATE: 20240101
